FAERS Safety Report 18886511 (Version 2)
Quarter: 2021Q1

REPORT INFORMATION
  Report Type: Spontaneous
  Country: DE (occurrence: DE)
  Receive Date: 20210212
  Receipt Date: 20210225
  Transmission Date: 20210420
  Serious: Yes (Hospitalization, Other)
  Sender: FDA-Public Use
  Company Number: DE-JNJFOC-20210221625

PATIENT
  Sex: Male

DRUGS (10)
  1. CARBIMAZOLE [Concomitant]
     Active Substance: CARBIMAZOLE
  2. FOLIC ACID. [Concomitant]
     Active Substance: FOLIC ACID
  3. VITAMIN B NOS [Concomitant]
     Active Substance: VITAMIN B
  4. ASA [Concomitant]
     Active Substance: ASPIRIN
  5. MOXONIDINE [Concomitant]
     Active Substance: MOXONIDINE
  6. ATORVASTATIN [Concomitant]
     Active Substance: ATORVASTATIN
  7. EZETIMIBE. [Concomitant]
     Active Substance: EZETIMIBE
  8. METHOTREXATE. [Concomitant]
     Active Substance: METHOTREXATE
  9. CLOPREDNOL [Concomitant]
     Active Substance: CLOPREDNOL
  10. STELARA [Suspect]
     Active Substance: USTEKINUMAB
     Indication: PRODUCT USED FOR UNKNOWN INDICATION
     Route: 058

REACTIONS (4)
  - Antibody test positive [Recovered/Resolved]
  - Crossmatch [Unknown]
  - Surgery [Unknown]
  - Hospitalisation [Unknown]

NARRATIVE: CASE EVENT DATE: 20210207
